FAERS Safety Report 5059006-4 (Version None)
Quarter: 2006Q3

REPORT INFORMATION
  Report Type: 
  Country: None (occurrence: None)
  Receive Date: 20060719
  Receipt Date: 20060710
  Transmission Date: 20061208
  Serious: Yes (Death, Hospitalization)
  Sender: FDA-Public Use
  Company Number: HQWYE072814MAR03

PATIENT
  Age: 63 Year
  Sex: Female
  Weight: 49 kg

DRUGS (10)
  1. MYLOTARG [Suspect]
     Indication: CHRONIC MYELOID LEUKAEMIA
     Dosage: 13 MG 1X PER 1 DAY, INTRAVENOUS
     Route: 042
     Dates: start: 20030307, end: 20030307
  2. FLUDARABINE PHOSPHATE [Suspect]
     Indication: CHRONIC MYELOID LEUKAEMIA
     Dosage: 39 MG TOTAL DAILY DOSE, INTRAVENOUS
     Route: 042
     Dates: start: 20030320, end: 20030324
  3. GEMCITABINE [Suspect]
     Indication: CHRONIC MYELOID LEUKAEMIA
     Dosage: 5652 MG TOTAL DAILY DOSE, INTRAVENOUS
     Route: 042
     Dates: start: 20030320, end: 20030320
  4. NOVANTRONE [Suspect]
     Indication: CHRONIC MYELOID LEUKAEMIA
     Dosage: 16 MG TOTAL DAILY DOSE, INTRAVENOUS
     Route: 042
     Dates: start: 20030320, end: 20030320
  5. DIFLUCAN [Concomitant]
  6. DILAUDID [Concomitant]
  7. ATIVAN [Concomitant]
  8. LEVAQUIN [Concomitant]
  9. INSULIN [Concomitant]
  10. GLEEVEC [Concomitant]

REACTIONS (49)
  - ABDOMINAL DISTENSION [None]
  - ABDOMINAL TENDERNESS [None]
  - ACTIVATED PARTIAL THROMBOPLASTIN TIME PROLONGED [None]
  - ALANINE AMINOTRANSFERASE INCREASED [None]
  - ASCITES [None]
  - ASPARTATE AMINOTRANSFERASE INCREASED [None]
  - BLOOD ALBUMIN DECREASED [None]
  - BLOOD ALKALINE PHOSPHATASE INCREASED [None]
  - BLOOD BILIRUBIN INCREASED [None]
  - BLOOD CHLORIDE DECREASED [None]
  - BLOOD FIBRINOGEN INCREASED [None]
  - BLOOD LACTATE DEHYDROGENASE INCREASED [None]
  - BLOOD SODIUM DECREASED [None]
  - BLOOD UREA INCREASED [None]
  - BONE MARROW FAILURE [None]
  - CARDIAC FAILURE [None]
  - COAGULOPATHY [None]
  - CONDITION AGGRAVATED [None]
  - CREPITATIONS [None]
  - DISEASE PROGRESSION [None]
  - FEBRILE NEUTROPENIA [None]
  - FLUID OVERLOAD [None]
  - GALLBLADDER DISORDER [None]
  - GALLOP RHYTHM PRESENT [None]
  - GENERALISED OEDEMA [None]
  - HAEMATOCRIT DECREASED [None]
  - HAEMOGLOBIN DECREASED [None]
  - HEPATIC FAILURE [None]
  - HEPATIC FUNCTION ABNORMAL [None]
  - HEPATOMEGALY [None]
  - JAUNDICE [None]
  - MENTAL STATUS CHANGES [None]
  - METASTASES TO CENTRAL NERVOUS SYSTEM [None]
  - METASTASES TO KIDNEY [None]
  - METASTASES TO LIVER [None]
  - MULTI-ORGAN FAILURE [None]
  - NAUSEA [None]
  - OCULAR ICTERUS [None]
  - PELVIC NEOPLASM [None]
  - PERFORMANCE STATUS DECREASED [None]
  - PLATELET MORPHOLOGY ABNORMAL [None]
  - PROTHROMBIN TIME PROLONGED [None]
  - PYREXIA [None]
  - RED BLOOD CELL COUNT DECREASED [None]
  - SPLENOMEGALY [None]
  - URINE ANALYSIS ABNORMAL [None]
  - VOMITING [None]
  - WEIGHT INCREASED [None]
  - WHITE BLOOD CELL COUNT DECREASED [None]
